FAERS Safety Report 19802445 (Version 1)
Quarter: 2021Q3

REPORT INFORMATION
  Report Type: Spontaneous
  Country: AT (occurrence: AT)
  Receive Date: 20210908
  Receipt Date: 20210908
  Transmission Date: 20211014
  Serious: Yes (Life-Threatening, Hospitalization, Other)
  Sender: FDA-Public Use
  Company Number: AT-VALIDUS PHARMACEUTICALS LLC-AT-VDP-2021-000998

PATIENT
  Age: 21 Year
  Sex: Female
  Weight: 40 kg

DRUGS (1)
  1. FUROSEMIDE. [Suspect]
     Active Substance: FUROSEMIDE
     Indication: PRODUCT USED FOR UNKNOWN INDICATION
     Dosage: UNK
     Route: 065

REACTIONS (13)
  - Pleural effusion [Recovered/Resolved]
  - Pneumonia [Recovered/Resolved]
  - Cardiac failure [Recovered/Resolved]
  - Pneumothorax traumatic [Recovered/Resolved]
  - Rhabdomyolysis [Unknown]
  - Ventricular fibrillation [Recovered/Resolved]
  - Renal failure [Unknown]
  - Sudden cardiac death [Recovered/Resolved]
  - Generalised tonic-clonic seizure [Recovered/Resolved]
  - Abscess [Unknown]
  - Hypokalaemia [Recovered/Resolved]
  - Drug abuse [Unknown]
  - Nephritis [Unknown]
